FAERS Safety Report 22162954 (Version 8)
Quarter: 2024Q1

REPORT INFORMATION
  Report Type: Report from Study
  Country: US (occurrence: US)
  Receive Date: 20230401
  Receipt Date: 20240312
  Transmission Date: 20240410
  Serious: Yes (Other)
  Sender: FDA-Public Use
  Company Number: US-002147023-NVSC2023US075192

PATIENT
  Sex: Female

DRUGS (5)
  1. KESIMPTA [Suspect]
     Active Substance: OFATUMUMAB
     Indication: Product used for unknown indication
     Dosage: UNK
     Route: 065
  2. KESIMPTA [Suspect]
     Active Substance: OFATUMUMAB
     Dosage: UNK
     Route: 065
  3. KESIMPTA [Suspect]
     Active Substance: OFATUMUMAB
     Dosage: UNK
     Route: 065
  4. KESIMPTA [Suspect]
     Active Substance: OFATUMUMAB
     Dosage: UNK
     Route: 065
  5. KESIMPTA [Suspect]
     Active Substance: OFATUMUMAB
     Dosage: UNK
     Route: 065

REACTIONS (12)
  - Neuropathy peripheral [Unknown]
  - Condition aggravated [Unknown]
  - Ear pain [Unknown]
  - Influenza like illness [Unknown]
  - Nausea [Unknown]
  - Fatigue [Unknown]
  - Tinnitus [Unknown]
  - Vertigo [Unknown]
  - Dizziness [Unknown]
  - Pain in extremity [Unknown]
  - Sleep disorder [Unknown]
  - Drug ineffective [Unknown]
